FAERS Safety Report 10472417 (Version 1)
Quarter: 2014Q3

REPORT INFORMATION
  Report Type: Spontaneous
  Country: BR (occurrence: BR)
  Receive Date: 20140924
  Receipt Date: 20140924
  Transmission Date: 20150326
  Serious: Yes (Hospitalization)
  Sender: FDA-Public Use
  Company Number: BR-ROCHE-1465803

PATIENT
  Age: 23 Year
  Sex: Female

DRUGS (9)
  1. BUDESONIDE/FORMOTEROL FUMARATE [Concomitant]
     Active Substance: BUDESONIDE\FORMOTEROL
     Dosage: 12/400MCG
     Route: 065
  2. CALCIUM CARBONATE. [Concomitant]
     Active Substance: CALCIUM CARBONATE
     Route: 065
  3. PANCREATIC ENZYME [Concomitant]
  4. PULMOZYME [Suspect]
     Active Substance: DORNASE ALFA
     Indication: CYSTIC FIBROSIS
     Route: 065
  5. OMEPRAZOLE. [Concomitant]
     Active Substance: OMEPRAZOLE
     Route: 065
  6. GLARGINE [Concomitant]
  7. AZITHROMYCIN [Concomitant]
     Active Substance: AZITHROMYCIN ANHYDROUS
     Route: 065
  8. TOBRAMYCIN [Concomitant]
     Active Substance: TOBRAMYCIN
     Route: 065
  9. URSACOL [Concomitant]
     Active Substance: URSODIOL
     Route: 065

REACTIONS (4)
  - Transplant dysfunction [Unknown]
  - Haemoptysis [Recovered/Resolved]
  - Off label use [Unknown]
  - Atelectasis [Recovered/Resolved]
